FAERS Safety Report 13973419 (Version 1)
Quarter: 2017Q3

REPORT INFORMATION
  Report Type: Spontaneous
  Country: CA (occurrence: CA)
  Receive Date: 20170915
  Receipt Date: 20170915
  Transmission Date: 20171128
  Serious: Yes (Other)
  Sender: FDA-Public Use
  Company Number: CA-009507513-1709CAN003818

PATIENT
  Age: 38 Year
  Sex: Female

DRUGS (5)
  1. HEARTGARD [Suspect]
     Active Substance: IVERMECTIN
     Indication: STRONGYLOIDIASIS
     Dosage: 200 MICROGRAM PER KILOGRAM, TOTALING 15 MG PER RECTUM, IN THE EVENING
     Route: 054
  2. HEARTGARD [Suspect]
     Active Substance: IVERMECTIN
     Dosage: 15 MG, QD
     Route: 048
  3. METRONIDAZOLE. [Concomitant]
     Active Substance: METRONIDAZOLE
     Indication: BACTERIAL SEPSIS
     Route: 042
  4. ALBENDAZOLE [Concomitant]
     Active Substance: ALBENDAZOLE
     Indication: STRONGYLOIDIASIS
     Dosage: 400 MG, BID
     Route: 048
  5. CEFTRIAXONE. [Concomitant]
     Active Substance: CEFTRIAXONE
     Indication: BACTERIAL SEPSIS
     Route: 042

REACTIONS (2)
  - Drug level below therapeutic [Unknown]
  - Product use issue [Unknown]
